FAERS Safety Report 15951367 (Version 1)
Quarter: 2019Q1

REPORT INFORMATION
  Report Type: Report from Study
  Country: US (occurrence: US)
  Receive Date: 20190212
  Receipt Date: 20190212
  Transmission Date: 20190417
  Serious: Yes (Hospitalization, Other)
  Sender: FDA-Public Use
  Company Number: US-TAKEDA-2019TUS005458

PATIENT
  Age: 48 Year
  Sex: Female
  Weight: 74.8 kg

DRUGS (2)
  1. VEDOLIZUMAB [Suspect]
     Active Substance: VEDOLIZUMAB
     Dosage: 300 MILLIGRAM
     Route: 042
     Dates: start: 201803
  2. VEDOLIZUMAB [Suspect]
     Active Substance: VEDOLIZUMAB
     Indication: CROHN^S DISEASE
     Dosage: 300 MILLIGRAM
     Route: 042
     Dates: start: 2017, end: 201710

REACTIONS (7)
  - Asthma [Recovered/Resolved]
  - Intentional product use issue [Unknown]
  - Weight decreased [Recovered/Resolved]
  - Fluid intake reduced [Recovered/Resolved]
  - Ileostomy closure [Unknown]
  - Hypoaesthesia oral [Recovered/Resolved]
  - Intestinal anastomosis [Unknown]

NARRATIVE: CASE EVENT DATE: 201710
